FAERS Safety Report 6558264-4 (Version None)
Quarter: 2010Q1

REPORT INFORMATION
  Report Type: 
  Country: None (occurrence: None)
  Receive Date: 20100126
  Receipt Date: 20100120
  Transmission Date: 20100710
  Serious: Yes (Hospitalization)
  Sender: FDA-Public Use
  Company Number: TPA2010A00232

PATIENT
  Age: 72 Year
  Sex: Female
  Weight: 102.0593 kg

DRUGS (2)
  1. ACTOS [Suspect]
     Indication: TYPE 2 DIABETES MELLITUS
     Dosage: 15 MG, 1 N 1 D, PER ORAL
     Route: 048
     Dates: start: 20091101
  2. METFORMIN HCL [Concomitant]

REACTIONS (4)
  - MALAISE [None]
  - NAUSEA [None]
  - PNEUMONIA [None]
  - VOMITING [None]
